FAERS Safety Report 16214576 (Version 2)
Quarter: 2020Q1

REPORT INFORMATION
  Report Type: Report from Study
  Country: TR (occurrence: TR)
  Receive Date: 20190418
  Receipt Date: 20200220
  Transmission Date: 20200409
  Serious: Yes (Other)
  Sender: FDA-Public Use
  Company Number: TR-SHIRE-TR201912115

PATIENT

DRUGS (1)
  1. COAGULATION FACTOR VIII (PORCINE, RECOMBINANT) [Suspect]
     Active Substance: ANTIHEMOPHILIC FACTOR PORCINE, B-DOMAIN TRUNCATED RECOMBINANT
     Indication: HAEMOPHILIA A WITH ANTI FACTOR VIII
     Dosage: 9180 INTERNATIONAL UNIT; 20 VIALS (RIGHT ARM)
     Route: 042
     Dates: start: 20190303, end: 20190303

REACTIONS (1)
  - Anamnestic reaction [Recovered/Resolved]

NARRATIVE: CASE EVENT DATE: 20190319
